FAERS Safety Report 8547621-2 (Version None)
Quarter: 2012Q3

REPORT INFORMATION
  Report Type: 
  Country: None (occurrence: None)
  Receive Date: 20120727
  Receipt Date: 20120405
  Transmission Date: 20120928
  Serious: Yes (Other)
  Sender: FDA-Public Use
  Company Number: US-ASTRAZENECA-2012SE22892

PATIENT
  Age: 49 Year
  Sex: Female

DRUGS (2)
  1. SEROQUEL [Suspect]
     Route: 048
  2. SEROQUEL [Suspect]
     Route: 048

REACTIONS (6)
  - BIPOLAR DISORDER [None]
  - TACHYCARDIA [None]
  - MALAISE [None]
  - ADVERSE EVENT [None]
  - FEELING ABNORMAL [None]
  - SUICIDAL BEHAVIOUR [None]
